FAERS Safety Report 20245894 (Version 1)
Quarter: 2021Q4

REPORT INFORMATION
  Report Type: Spontaneous
  Country: US (occurrence: None)
  Receive Date: 20211228
  Receipt Date: 20211228
  Transmission Date: 20220303
  Serious: Yes (Other)
  Sender: FDA-Public Use
  Company Number: None

PATIENT
  Age: 67 Year
  Sex: Female
  Weight: 76.5 kg

DRUGS (6)
  1. SPRYCEL [Suspect]
     Active Substance: DASATINIB
     Indication: Chronic myeloid leukaemia
     Dosage: FREQUENCY : DAILY;?
     Route: 048
     Dates: start: 20211106, end: 20211228
  2. ALLOPURINOL [Concomitant]
     Active Substance: ALLOPURINOL
  3. MOTRIN IB [Concomitant]
     Active Substance: IBUPROFEN
  4. CYCLOBENZAPRINE [Concomitant]
     Active Substance: CYCLOBENZAPRINE
  5. ZYRTEC [Concomitant]
     Active Substance: CETIRIZINE HYDROCHLORIDE
  6. UNSPECIFIED INGREDIENT [Concomitant]
     Active Substance: UNSPECIFIED INGREDIENT

REACTIONS (6)
  - Constipation [None]
  - Full blood count abnormal [None]
  - Decreased appetite [None]
  - Taste disorder [None]
  - Fatigue [None]
  - Haematochezia [None]

NARRATIVE: CASE EVENT DATE: 20211228
